FAERS Safety Report 21780714 (Version 1)
Quarter: 2022Q4

REPORT INFORMATION
  Report Type: Report from Study
  Country: US (occurrence: US)
  Receive Date: 20221227
  Receipt Date: 20221227
  Transmission Date: 20230112
  Serious: No
  Sender: FDA-Public Use
  Company Number: US-ABBVIE-4249744

PATIENT
  Sex: Male

DRUGS (1)
  1. SKYRIZI [Suspect]
     Active Substance: RISANKIZUMAB-RZAA
     Indication: Psoriasis
     Dosage: WEEK 0?FIRST ADMIN DATE: 23 NOV 2022?LAST ADMIN DATE: 23 NOV 2022
     Route: 058

REACTIONS (5)
  - Oropharyngeal pain [Unknown]
  - Feeling abnormal [Unknown]
  - Pharyngeal erythema [Unknown]
  - Headache [Unknown]
  - Secretion discharge [Unknown]

NARRATIVE: CASE EVENT DATE: 20220101
